FAERS Safety Report 15269262 (Version 2)
Quarter: 2018Q3

REPORT INFORMATION
  Report Type: Spontaneous
  Country: FR (occurrence: FR)
  Receive Date: 20180813
  Receipt Date: 20180907
  Transmission Date: 20181010
  Serious: Yes (Other)
  Sender: FDA-Public Use
  Company Number: FR-ZYDUS-021144

PATIENT
  Age: 21 Year
  Sex: Female

DRUGS (2)
  1. PAROXETINE. [Suspect]
     Active Substance: PAROXETINE
     Indication: DEPRESSION
     Route: 065
  2. MIANSERIN [Interacting]
     Active Substance: MIANSERIN
     Indication: DEPRESSION
     Route: 065

REACTIONS (6)
  - Platelet disorder [Recovered/Resolved]
  - Menorrhagia [Unknown]
  - Ecchymosis [Recovered/Resolved]
  - Drug interaction [Unknown]
  - Contusion [Recovered/Resolved]
  - Gingival bleeding [Recovered/Resolved]
